FAERS Safety Report 20797489 (Version 1)
Quarter: 2022Q2

REPORT INFORMATION
  Report Type: Spontaneous
  Country: US (occurrence: None)
  Receive Date: 20220505
  Receipt Date: 20220505
  Transmission Date: 20220720
  Serious: Yes (Hospitalization)
  Sender: FDA-Public Use
  Company Number: None

PATIENT
  Sex: Female

DRUGS (1)
  1. CAPECITABINE [Suspect]
     Active Substance: CAPECITABINE
     Indication: Colon cancer
     Dosage: TAKE 3 TABLETS BY MOUTH TWICE DAILY WITH 1 OTHER CAPECITABINE PRESCRIPTION FOR 1,650 MG TOTAL TWICE
     Route: 048
     Dates: start: 20220316

REACTIONS (3)
  - Palmar-plantar erythrodysaesthesia syndrome [None]
  - Arthralgia [None]
  - Diarrhoea [None]
